FAERS Safety Report 13051753 (Version 2)
Quarter: 2017Q1

REPORT INFORMATION
  Report Type: Spontaneous
  Country: IE (occurrence: IE)
  Receive Date: 20161221
  Receipt Date: 20170208
  Transmission Date: 20170428
  Serious: Yes (Other)
  Sender: FDA-Public Use
  Company Number: IE-JNJFOC-20161214509

PATIENT
  Age: 69 Year
  Sex: Female

DRUGS (14)
  1. NEURONTIN [Concomitant]
     Active Substance: GABAPENTIN
     Route: 050
  2. PANTOPRAZOLE [Concomitant]
     Active Substance: PANTOPRAZOLE SODIUM
     Route: 050
  3. STELARA [Suspect]
     Active Substance: USTEKINUMAB
     Indication: VASCULITIS
     Route: 058
     Dates: start: 20160802
  4. STELARA [Suspect]
     Active Substance: USTEKINUMAB
     Indication: VASCULITIS
     Route: 058
     Dates: start: 20161214
  5. STELARA [Suspect]
     Active Substance: USTEKINUMAB
     Indication: VASCULITIS
     Route: 058
     Dates: start: 20160915
  6. AMITRIPTYLINE [Concomitant]
     Active Substance: AMITRIPTYLINE
     Route: 050
  7. PARACETAMOL [Concomitant]
     Active Substance: ACETAMINOPHEN
     Route: 050
  8. STELARA [Suspect]
     Active Substance: USTEKINUMAB
     Indication: VASCULITIS
     Route: 058
     Dates: start: 20160915
  9. DELTACORTRIL [Concomitant]
     Active Substance: PREDNISOLONE
     Route: 050
  10. ELTROXIN [Concomitant]
     Active Substance: LEVOTHYROXINE
     Route: 050
  11. ASPIRIN. [Concomitant]
     Active Substance: ASPIRIN
     Route: 050
  12. DESUNIN [Concomitant]
     Active Substance: CHOLECALCIFEROL
     Dosage: 800 U
     Route: 050
  13. CLONAZEPAM. [Concomitant]
     Active Substance: CLONAZEPAM
     Route: 050
  14. TRAMADOL. [Concomitant]
     Active Substance: TRAMADOL
     Route: 065

REACTIONS (7)
  - Nausea [Recovered/Resolved]
  - Fatigue [Recovered/Resolved]
  - Off label use [Unknown]
  - Fall [Recovering/Resolving]
  - Upper limb fracture [Recovering/Resolving]
  - Wound [Recovering/Resolving]
  - Product use issue [Unknown]

NARRATIVE: CASE EVENT DATE: 20160802
